FAERS Safety Report 19826464 (Version 1)
Quarter: 2021Q3

REPORT INFORMATION
  Report Type: Spontaneous
  Country: None (occurrence: US)
  Receive Date: 20210913
  Receipt Date: 20210913
  Transmission Date: 20211014
  Serious: No
  Sender: FDA-Public Use
  Company Number: US-B.BRAUN MEDICAL INC.-2118311

PATIENT
  Age: 29 Year
  Sex: Female

DRUGS (1)
  1. BUPIVACAINE HYDROCHLORIDE WITH DEXTROSE [Suspect]
     Active Substance: BUPIVACAINE HYDROCHLORIDE
     Indication: CAESAREAN SECTION

REACTIONS (2)
  - Exposure during pregnancy [Unknown]
  - Anaesthetic complication [Unknown]
